FAERS Safety Report 6032553-4 (Version None)
Quarter: 2009Q1

REPORT INFORMATION
  Report Type: 
  Country: None (occurrence: None)
  Receive Date: 20090107
  Receipt Date: 20090107
  Transmission Date: 20090719
  Serious: Yes (Hospitalization)
  Sender: FDA-Public Use
  Company Number: None

PATIENT
  Sex: Female
  Weight: 70.31 kg

DRUGS (2)
  1. CISPLATIN [Suspect]
     Dosage: 176 MG
     Dates: end: 20081218
  2. NAVELBINE [Suspect]
     Dosage: 116 MG
     Dates: end: 20081224

REACTIONS (3)
  - DRUG INEFFECTIVE [None]
  - NAUSEA [None]
  - RETCHING [None]
